FAERS Safety Report 8050982-4 (Version None)
Quarter: 2012Q1

REPORT INFORMATION
  Report Type: 
  Country: None (occurrence: None)
  Receive Date: 20120117
  Receipt Date: 20120110
  Transmission Date: 20120608
  Serious: Yes (Other)
  Sender: FDA-Public Use
  Company Number: PHHY2011JP103837

PATIENT
  Age: 73 Year
  Sex: Female

DRUGS (7)
  1. CAPECITABINE [Concomitant]
  2. MEDROXYPROGESTERONE ACETATE [Concomitant]
  3. ZOMETA [Suspect]
     Indication: METASTASES TO BONE
     Dosage: 4 MG, UNK
     Route: 041
  4. TS-1 [Concomitant]
  5. AREDIA [Suspect]
     Route: 041
     Dates: start: 20060201
  6. PACLITAXEL [Concomitant]
  7. TOR [Concomitant]

REACTIONS (6)
  - OSTEONECROSIS OF JAW [None]
  - NEOPLASM PROGRESSION [None]
  - METASTASES TO BONE [None]
  - BONE NEOPLASM [None]
  - NEOPLASM MALIGNANT [None]
  - METASTASES TO CHEST WALL [None]
